FAERS Safety Report 4414872-8 (Version None)
Quarter: 2004Q3

REPORT INFORMATION
  Report Type: 
  Country: None (occurrence: None)
  Receive Date: 20040804
  Receipt Date: 20040116
  Transmission Date: 20050211
  Serious: No
  Sender: FDA-Public Use
  Company Number: US-BRISTOL-MYERS SQUIBB COMPANY-12480158

PATIENT
  Age: 58 Year
  Sex: Female
  Weight: 100 kg

DRUGS (4)
  1. GLUCOVANCE [Suspect]
     Indication: DIABETES MELLITUS
     Dates: start: 20040115
  2. TENORMIN [Concomitant]
  3. LIPITOR [Concomitant]
  4. LOPID [Concomitant]

REACTIONS (1)
  - BLOOD GLUCOSE DECREASED [None]
